FAERS Safety Report 8495308-7 (Version None)
Quarter: 2012Q3

REPORT INFORMATION
  Report Type: 
  Country: None (occurrence: None)
  Receive Date: 20120709
  Receipt Date: 20120615
  Transmission Date: 20120928
  Serious: Yes (Hospitalization, Other)
  Sender: FDA-Public Use
  Company Number: DK-PFIZER INC-2012145852

PATIENT
  Age: 46 Year
  Sex: Female

DRUGS (5)
  1. LAMICTAL [Suspect]
     Dosage: UNK
     Route: 048
     Dates: end: 20110526
  2. EFFEXOR [Suspect]
     Dosage: UNK
     Route: 048
     Dates: end: 20110601
  3. EFFEXOR [Suspect]
     Indication: DEPRESSION
     Dosage: 75 MG, UNK
     Route: 048
     Dates: start: 20041201
  4. LAMICTAL [Suspect]
     Dosage: 50 MG, UNK
     Route: 048
  5. LAMICTAL [Suspect]
     Indication: DEPRESSION
     Dosage: UNK
     Route: 048
     Dates: start: 20050101

REACTIONS (16)
  - HEPATIC ENZYME INCREASED [None]
  - ABDOMINAL PAIN [None]
  - DISSOCIATIVE IDENTITY DISORDER [None]
  - EMOTIONAL DISORDER [None]
  - FATIGUE [None]
  - CONSTIPATION [None]
  - STRESS [None]
  - NAUSEA [None]
  - VOMITING [None]
  - WEIGHT DECREASED [None]
  - DECREASED APPETITE [None]
  - FEELING ABNORMAL [None]
  - DRUG-INDUCED LIVER INJURY [None]
  - JAUNDICE [None]
  - CHROMATURIA [None]
  - DEPRESSED MOOD [None]
